FAERS Safety Report 12143653 (Version 1)
Quarter: 2016Q1

REPORT INFORMATION
  Report Type: Spontaneous
  Country: US (occurrence: US)
  Receive Date: 20160304
  Receipt Date: 20160304
  Transmission Date: 20160526
  Serious: No
  Sender: FDA-Public Use
  Company Number: US-JNJFOC-20160117279

PATIENT
  Age: 59 Year
  Sex: Female
  Weight: 70.31 kg

DRUGS (3)
  1. ZYRTEC 10MG IR TABLET [Suspect]
     Active Substance: CETIRIZINE HYDROCHLORIDE
     Indication: ADVERSE DRUG REACTION
     Dosage: 1/2 TABLET, 2 TIMES A DAY
     Route: 048
     Dates: start: 20151118
  2. VANCOMYCIN [Concomitant]
     Active Substance: VANCOMYCIN
     Indication: LYME DISEASE
     Dosage: 1 GRAM, 2 TIMES PER DAY, 3 MONTHS, START DATE ON 18-NOV AND 20-NOV
     Route: 042
  3. ZYRTEC 10MG IR TABLET [Suspect]
     Active Substance: CETIRIZINE HYDROCHLORIDE
     Indication: MULTIPLE ALLERGIES
     Dosage: 1/2 TABLET, 2 TIMES A DAY
     Route: 048
     Dates: start: 20151118

REACTIONS (6)
  - Wrong technique in product usage process [Recovering/Resolving]
  - Product use issue [Recovering/Resolving]
  - Off label use [Recovering/Resolving]
  - Therapeutic response unexpected [Recovering/Resolving]
  - Product packaging issue [Recovering/Resolving]
  - Somnolence [Recovering/Resolving]

NARRATIVE: CASE EVENT DATE: 20151118
